FAERS Safety Report 9964034 (Version 1)
Quarter: 2014Q1

REPORT INFORMATION
  Report Type: Spontaneous
  Country: US (occurrence: US)
  Receive Date: 20140305
  Receipt Date: 20140305
  Transmission Date: 20141002
  Serious: Yes (Death)
  Sender: FDA-Public Use
  Company Number: US-GLAXOSMITHKLINE-A1063595A

PATIENT
  Sex: Male

DRUGS (1)
  1. HYCAMTIN [Suspect]
     Indication: BRONCHIAL CARCINOMA
     Route: 065

REACTIONS (1)
  - Death [Fatal]
